FAERS Safety Report 9700067 (Version 1)
Quarter: 2013Q4

REPORT INFORMATION
  Report Type: Report from Study
  Country: US (occurrence: US)
  Receive Date: 20131121
  Receipt Date: 20131121
  Transmission Date: 20140711
  Serious: Yes (Death)
  Sender: FDA-Public Use
  Company Number: US-ROCHE-1305402

PATIENT
  Sex: Male

DRUGS (1)
  1. ACTIVASE [Suspect]
     Indication: THROMBOTIC CEREBRAL INFARCTION
     Dosage: 1 VIAL
     Route: 065

REACTIONS (1)
  - Death [Fatal]
